FAERS Safety Report 18430553 (Version 1)
Quarter: 2020Q4

REPORT INFORMATION
  Report Type: Spontaneous
  Country: CN (occurrence: CN)
  Receive Date: 20201027
  Receipt Date: 20201027
  Transmission Date: 20210114
  Serious: No
  Sender: FDA-Public Use
  Company Number: CN-LUPIN PHARMACEUTICALS INC.-2020-02952

PATIENT
  Age: 55 Year
  Sex: Male

DRUGS (8)
  1. VANCOMYCIN [Suspect]
     Active Substance: VANCOMYCIN
     Indication: BRAIN ABSCESS
     Dosage: 1000 MILLIGRAM, BID
     Route: 065
  2. CEFTRIAXONE. [Suspect]
     Active Substance: CEFTRIAXONE
     Indication: STREPTOCOCCAL INFECTION
  3. MEROPENEM. [Suspect]
     Active Substance: MEROPENEM
     Indication: BRAIN ABSCESS
     Dosage: 1 GRAM, BID
     Route: 065
  4. VANCOMYCIN [Suspect]
     Active Substance: VANCOMYCIN
     Indication: STREPTOCOCCAL INFECTION
  5. LEVOFLOXACIN. [Concomitant]
     Active Substance: LEVOFLOXACIN
     Indication: BRAIN ABSCESS
     Dosage: UNK
     Route: 065
  6. LEVOFLOXACIN. [Concomitant]
     Active Substance: LEVOFLOXACIN
     Indication: STREPTOCOCCAL INFECTION
  7. CEFTRIAXONE. [Suspect]
     Active Substance: CEFTRIAXONE
     Indication: BRAIN ABSCESS
     Dosage: 2 GRAM, QD
     Route: 065
  8. MEROPENEM. [Suspect]
     Active Substance: MEROPENEM
     Indication: STREPTOCOCCAL INFECTION

REACTIONS (2)
  - Drug intolerance [Unknown]
  - Treatment failure [Unknown]
